FAERS Safety Report 16861839 (Version 1)
Quarter: 2019Q3

REPORT INFORMATION
  Report Type: Spontaneous
  Country: FR (occurrence: FR)
  Receive Date: 20190927
  Receipt Date: 20190927
  Transmission Date: 20191005
  Serious: Yes (Hospitalization)
  Sender: FDA-Public Use
  Company Number: FR-TEVA-2019-FR-1113567

PATIENT
  Age: 48 Year
  Sex: Female

DRUGS (8)
  1. ZOLEDRONIC ACID [Suspect]
     Active Substance: ZOLEDRONIC ACID
     Indication: HYPERCALCAEMIA
     Dosage: 4 MG,QCY
     Route: 042
     Dates: start: 20120207, end: 20120207
  2. CAPECITABINE. [Suspect]
     Active Substance: CAPECITABINE
     Indication: BREAST CANCER
     Dosage: 2960 MG,QD
     Route: 048
     Dates: start: 20120207, end: 20120212
  3. CAPECITABINE. [Suspect]
     Active Substance: CAPECITABINE
     Dosage: 2 MG/M2,QD
     Route: 048
     Dates: start: 201205
  4. TAXOTERE [Suspect]
     Active Substance: DOCETAXEL
     Indication: BREAST CANCER
     Dosage: 111 MG,QCY
     Route: 042
     Dates: start: 20120207, end: 20120207
  5. TAXOTERE [Suspect]
     Active Substance: DOCETAXEL
     Dosage: 111 MG,QCY
     Route: 042
     Dates: start: 20120228, end: 20120228
  6. MEDROL [Concomitant]
     Active Substance: METHYLPREDNISOLONE
     Indication: PREMEDICATION
     Dosage: 48 MG,QCY
     Route: 048
     Dates: start: 20120207, end: 20120207
  7. LOVENOX [Concomitant]
     Active Substance: ENOXAPARIN SODIUM
     Dosage: 4000 IU,QD
     Route: 058
  8. MEDROL [Concomitant]
     Active Substance: METHYLPREDNISOLONE
     Dosage: 48 MG,QCY
     Route: 048
     Dates: start: 20120228, end: 20120228

REACTIONS (1)
  - Palmar-plantar erythrodysaesthesia syndrome [Recovered/Resolved]

NARRATIVE: CASE EVENT DATE: 20120207
